FAERS Safety Report 24152523 (Version 1)
Quarter: 2024Q3

REPORT INFORMATION
  Report Type: Spontaneous
  Country: TW (occurrence: TW)
  Receive Date: 20240730
  Receipt Date: 20240730
  Transmission Date: 20241017
  Serious: Yes (Death, Life-Threatening)
  Sender: MEDEXUS PHARMA
  Company Number: TW-MEDEXUS PHARMA, INC.-2024MED00321

PATIENT
  Age: 66 Year
  Sex: Male

DRUGS (5)
  1. METHOTREXATE [Suspect]
     Active Substance: METHOTREXATE
     Indication: Psoriasis
  2. METHOTREXATE [Suspect]
     Active Substance: METHOTREXATE
     Dosage: 15 MG, 1X/WEEK
     Dates: start: 202007, end: 202110
  3. ADALIMUMAB [Suspect]
     Active Substance: ADALIMUMAB\ISOPROPYL ALCOHOL
     Indication: Psoriasis
     Dosage: 80 MG, EVERY 2 WEEKS
     Dates: start: 201808
  4. MODERNA COVID-19 VACCINE [Suspect]
     Active Substance: ELASOMERAN
     Indication: Immunisation
     Dosage: UNK
     Dates: start: 20210713, end: 20210713
  5. MODERNA COVID-19 VACCINE [Suspect]
     Active Substance: ELASOMERAN
     Dosage: UNK
     Dates: start: 20211026, end: 20211026

REACTIONS (4)
  - Angioimmunoblastic T-cell lymphoma [Fatal]
  - Disseminated intravascular coagulation [Fatal]
  - Immune system disorder [Unknown]
  - Infection [Fatal]

NARRATIVE: CASE EVENT DATE: 20220701
